FAERS Safety Report 9579923 (Version 1)
Quarter: 2013Q3

REPORT INFORMATION
  Report Type: Spontaneous
  Country: US (occurrence: None)
  Receive Date: 20130930
  Receipt Date: 20130930
  Transmission Date: 20140515
  Serious: No
  Sender: FDA-Public Use
  Company Number: None

PATIENT
  Age: 11 Year
  Sex: Female
  Weight: 30.84 kg

DRUGS (1)
  1. METHYLPHENIDATE ER [Suspect]
     Indication: ATTENTION DEFICIT/HYPERACTIVITY DISORDER
     Route: 048
     Dates: start: 20130906, end: 20130927

REACTIONS (9)
  - Drug ineffective [None]
  - Product quality issue [None]
  - Product substitution issue [None]
  - Disturbance in attention [None]
  - Mood swings [None]
  - Condition aggravated [None]
  - Educational problem [None]
  - Apathy [None]
  - Abnormal behaviour [None]
